FAERS Safety Report 24016718 (Version 1)
Quarter: 2024Q2

REPORT INFORMATION
  Report Type: Spontaneous
  Country: US (occurrence: None)
  Receive Date: 20240625
  Receipt Date: 20240625
  Transmission Date: 20240715
  Serious: Yes (Hospitalization, Other)
  Sender: FDA-Public Use
  Company Number: None

PATIENT
  Age: 57 Year
  Sex: Male
  Weight: 91.63 kg

DRUGS (3)
  1. BOTOX [Suspect]
     Active Substance: BOTULINUM TOXIN TYPE A\ONABOTULINUMTOXINA
     Indication: Migraine
     Dosage: FREQUENCY : ONCE;?
     Route: 023
     Dates: start: 20240617, end: 20240617
  2. BOTOX [Suspect]
     Active Substance: BOTULINUM TOXIN TYPE A\ONABOTULINUMTOXINA
     Indication: Dystonic tremor
  3. PAPAIN [Concomitant]
     Active Substance: PAPAIN

REACTIONS (4)
  - Botulism [None]
  - Muscular weakness [None]
  - Dysphonia [None]
  - Cerebrovascular accident [None]

NARRATIVE: CASE EVENT DATE: 20240617
